FAERS Safety Report 5059633-4 (Version None)
Quarter: 2006Q3

REPORT INFORMATION
  Report Type: 
  Country: None (occurrence: None)
  Receive Date: 20060724
  Receipt Date: 20060123
  Transmission Date: 20061208
  Serious: No
  Sender: FDA-Public Use
  Company Number: US-GLAXOSMITHKLINE-A0590493A

PATIENT
  Age: 70 Year
  Sex: Female

DRUGS (1)
  1. HYCAMTIN [Suspect]
     Route: 042
     Dates: start: 20060103

REACTIONS (3)
  - NAUSEA [None]
  - VOMITING [None]
  - WEIGHT DECREASED [None]
